FAERS Safety Report 21500755 (Version 1)
Quarter: 2022Q4

REPORT INFORMATION
  Report Type: Report from Study
  Country: FR (occurrence: FR)
  Receive Date: 20221025
  Receipt Date: 20221025
  Transmission Date: 20230113
  Serious: Yes (Life-Threatening, Hospitalization)
  Sender: FDA-Public Use
  Company Number: FR-BRISTOL-MYERS SQUIBB COMPANY-2022-068645

PATIENT
  Age: 57 Year
  Sex: Male
  Weight: 62.0 kg

DRUGS (7)
  1. NIVOLUMAB [Suspect]
     Active Substance: NIVOLUMAB
     Indication: Lung neoplasm malignant
     Route: 042
     Dates: start: 20220322, end: 20220419
  2. SITRAVATINIB [Suspect]
     Active Substance: SITRAVATINIB
     Indication: Lung neoplasm malignant
     Route: 048
     Dates: start: 20220322, end: 20220513
  3. AMLODIPINE BESYLATE [Concomitant]
     Active Substance: AMLODIPINE BESYLATE
     Dates: start: 20220421
  4. AMLODIPINE BESYLATE [Concomitant]
     Active Substance: AMLODIPINE BESYLATE
     Indication: Product used for unknown indication
  5. PARASOFT [PARACETAMOL] [Concomitant]
     Indication: Product used for unknown indication
     Dates: start: 20220301
  6. COMPOUND NUTRITION [Concomitant]
     Indication: Product used for unknown indication
  7. ATEZOLIZUMAB [Concomitant]
     Active Substance: ATEZOLIZUMAB
     Indication: Product used for unknown indication

REACTIONS (1)
  - Ejection fraction decreased [Recovered/Resolved]

NARRATIVE: CASE EVENT DATE: 20220513
